FAERS Safety Report 4789566-X (Version None)
Quarter: 2005Q4

REPORT INFORMATION
  Report Type: 
  Country: None (occurrence: None)
  Receive Date: 20051005
  Receipt Date: 20051005
  Transmission Date: 20060501
  Serious: Yes (Hospitalization)
  Sender: FDA-Public Use
  Company Number: None

PATIENT
  Age: 86 Year
  Sex: Female
  Weight: 64 kg

DRUGS (7)
  1. WARFARIN [Suspect]
     Indication: ATRIAL FIBRILLATION
     Dosage: 5MG/2.5MG PO ON ALTERNATE DAYS
     Route: 048
  2. LOSARTAN POTASSIUM [Concomitant]
  3. DIGOXIN [Concomitant]
  4. AMIODARONE [Concomitant]
  5. LEVOTHYROXINE [Concomitant]
  6. FUROSEMIDE [Concomitant]
  7. CARVEDILOL [Concomitant]

REACTIONS (3)
  - ANAEMIA [None]
  - HAEMORRHOIDS [None]
  - RECTAL HAEMORRHAGE [None]
